FAERS Safety Report 12771354 (Version 1)
Quarter: 2016Q3

REPORT INFORMATION
  Report Type: Report from Study
  Country: RO (occurrence: RO)
  Receive Date: 20160922
  Receipt Date: 20160922
  Transmission Date: 20161109
  Serious: Yes (Hospitalization)
  Sender: FDA-Public Use
  Company Number: RO-ABBVIE-16P-135-1730633-00

PATIENT
  Age: 73 Year
  Sex: Male

DRUGS (1)
  1. DUODOPA [Suspect]
     Active Substance: CARBIDOPA\LEVODOPA
     Indication: PARKINSON^S DISEASE
     Dosage: MD-3 ML,CR-3.1 ML/H,ED - 1.6 ML
     Route: 050
     Dates: start: 20140514

REACTIONS (4)
  - Respiratory failure [Recovering/Resolving]
  - Panic attack [Recovered/Resolved]
  - Lung disorder [Recovering/Resolving]
  - Bronchial disorder [Recovering/Resolving]

NARRATIVE: CASE EVENT DATE: 20160909
